FAERS Safety Report 6402200-8 (Version None)
Quarter: 2009Q4

REPORT INFORMATION
  Report Type: 
  Country: None (occurrence: None)
  Receive Date: 20091015
  Receipt Date: 20091001
  Transmission Date: 20100525
  Serious: Yes (Other)
  Sender: FDA-Public Use
  Company Number: GB-MYLANLABS-2009S1017295

PATIENT
  Sex: Male

DRUGS (2)
  1. ENALAPRIL MALEATE [Suspect]
     Indication: HYPERTENSION
  2. INDAPAMIDE [Suspect]
     Indication: HYPERTENSION

REACTIONS (2)
  - POLYNEUROPATHY [None]
  - VITAMIN B12 DEFICIENCY [None]
